FAERS Safety Report 8297357-0 (Version None)
Quarter: 2012Q2

REPORT INFORMATION
  Report Type: 
  Country: None (occurrence: None)
  Receive Date: 20120419
  Receipt Date: 20120406
  Transmission Date: 20120825
  Serious: Yes (Other)
  Sender: FDA-Public Use
  Company Number: TR-AMGEN-TURSP2012022760

PATIENT
  Age: 44 Year
  Sex: Female

DRUGS (1)
  1. ENBREL [Suspect]
     Indication: RHEUMATOID ARTHRITIS
     Dosage: 50 MG, WEEKLY
     Route: 058
     Dates: start: 20111230, end: 20120310

REACTIONS (7)
  - INJECTION SITE PRURITUS [None]
  - INJECTION SITE VESICLES [None]
  - BACTERIAL TEST POSITIVE [None]
  - INJECTION SITE SWELLING [None]
  - INJECTION SITE ABSCESS [None]
  - INJECTION SITE ERYTHEMA [None]
  - AMENORRHOEA [None]
